FAERS Safety Report 22318208 (Version 2)
Quarter: 2023Q2

REPORT INFORMATION
  Report Type: Report from Study
  Country: EG (occurrence: EG)
  Receive Date: 20230515
  Receipt Date: 20230527
  Transmission Date: 20230722
  Serious: Yes (Other)
  Sender: FDA-Public Use
  Company Number: EG-002147023-NVSC2023EG107130

PATIENT
  Sex: Female

DRUGS (9)
  1. COSENTYX [Suspect]
     Active Substance: SECUKINUMAB
     Indication: Psoriatic arthropathy
     Dosage: 1 DOSAGE FORM, QMO (1 PREFILLED PEN MONTHLY)
     Route: 058
     Dates: start: 2018
  2. COSENTYX [Suspect]
     Active Substance: SECUKINUMAB
     Dosage: 2 DOSAGE FORM, QMO ( 2 PREFILLED PENS MONTHLY)
     Route: 058
  3. INSULIN HUMAN [Concomitant]
     Active Substance: INSULIN HUMAN
     Indication: Diabetes mellitus
     Dosage: UNK (STARED 20 YEARS AGO) (40 OR 20 UNITS ACCORDING TO HER HCP)
     Route: 065
  4. CALCIUM [Concomitant]
     Active Substance: CALCIUM
     Indication: Immunodeficiency
     Dosage: UNK (ALMOST JAN 22 (THE REPORTER  STATED THAT NOT ALL THE VITAMINS WERE STOPPED AT THE SAME  TIME BU
     Route: 065
     Dates: start: 202201
  5. CALCIUM [Concomitant]
     Active Substance: CALCIUM
     Indication: Bone disorder
  6. VITAMIN D NOS [Concomitant]
     Active Substance: VITAMIN D NOS
     Indication: Immunodeficiency
     Dosage: UNK
     Route: 065
     Dates: start: 202201
  7. VITAMIN D NOS [Concomitant]
     Active Substance: VITAMIN D NOS
     Indication: Bone disorder
  8. OMEGA 3 [Concomitant]
     Active Substance: CAPSAICIN
     Indication: Immunodeficiency
     Dosage: UNK
     Route: 065
     Dates: start: 202201
  9. OMEGA 3 [Concomitant]
     Active Substance: CAPSAICIN
     Indication: Bone disorder

REACTIONS (9)
  - Neoplasm progression [Not Recovered/Not Resolved]
  - Dysphagia [Not Recovered/Not Resolved]
  - Illness [Not Recovered/Not Resolved]
  - Movement disorder [Not Recovered/Not Resolved]
  - Glycosylated haemoglobin increased [Unknown]
  - Product prescribing error [Unknown]
  - Product dispensing issue [Unknown]
  - Inappropriate schedule of product administration [Not Recovered/Not Resolved]
  - Drug ineffective [Unknown]

NARRATIVE: CASE EVENT DATE: 20180101
